FAERS Safety Report 9210867 (Version 3)
Quarter: 2013Q2

REPORT INFORMATION
  Report Type: Spontaneous
  Country: GB (occurrence: GB)
  Receive Date: 20130404
  Receipt Date: 20130621
  Transmission Date: 20140414
  Serious: Yes (Other)
  Sender: FDA-Public Use
  Company Number: GB-TEVA-394572ISR

PATIENT
  Age: 73 Year
  Sex: Male

DRUGS (8)
  1. ALENDRONIC ACID [Suspect]
     Dates: start: 200803
  2. QUESTRAN LIGHT [Interacting]
     Dosage: 1 DF = 4G POWDER ONE SACHETS
     Route: 048
     Dates: start: 201005
  3. QUESTRAN [Interacting]
     Dosage: 1 DF = 4 SACHETS
     Route: 048
     Dates: start: 1990, end: 20051020
  4. ADCAL-D3 [Interacting]
     Dosage: 2 DOSAGE FORMS DAILY; 1DF: TWO TABLETS DAILY
     Dates: start: 200803
  5. COLOFAC [Interacting]
     Indication: GASTROINTESTINAL PAIN
     Dosage: 405 MILLIGRAM DAILY;
  6. VITAMIN B12 [Concomitant]
     Dosage: INJECTION
  7. BENDROFLUMETHIAZIDE [Concomitant]
     Dosage: 2.5 MILLIGRAM DAILY;
  8. CODEINE [Concomitant]
     Dosage: TABS 4/D

REACTIONS (4)
  - Nephrolithiasis [Unknown]
  - Osteoporosis [Not Recovered/Not Resolved]
  - Drug interaction [Unknown]
  - Hypertension [Unknown]
